FAERS Safety Report 7921708-7 (Version None)
Quarter: 2011Q4

REPORT INFORMATION
  Report Type: 
  Country: None (occurrence: None)
  Receive Date: 20111117
  Receipt Date: 20111108
  Transmission Date: 20120403
  Serious: Yes (Hospitalization)
  Sender: FDA-Public Use
  Company Number: US-GLAXOSMITHKLINE-A0915668A

PATIENT
  Age: 76 Year
  Sex: Female

DRUGS (1)
  1. AVANDIA [Suspect]
     Indication: DIABETES MELLITUS
     Route: 048
     Dates: start: 20041001, end: 20100501

REACTIONS (4)
  - RENAL FAILURE CHRONIC [None]
  - TRANSIENT ISCHAEMIC ATTACK [None]
  - ENDARTERECTOMY [None]
  - CARDIAC FAILURE CONGESTIVE [None]
